FAERS Safety Report 4598919-4 (Version None)
Quarter: 2005Q1

REPORT INFORMATION
  Report Type: 
  Country: None (occurrence: None)
  Receive Date: 20050304
  Receipt Date: 20050228
  Transmission Date: 20050727
  Serious: Yes (Hospitalization, Other)
  Sender: FDA-Public Use
  Company Number: US-ABBOTT-05P-163-0292273-00

PATIENT
  Sex: Male

DRUGS (1)
  1. BIAXIN XL [Suspect]
     Indication: SINUSITIS
     Route: 048
     Dates: start: 20050208, end: 20050210

REACTIONS (7)
  - ASTHENIA [None]
  - CHEST PAIN [None]
  - HYPERTENSION [None]
  - MANIA [None]
  - MUSCLE SPASMS [None]
  - PARANOIA [None]
  - PSYCHOTIC DISORDER [None]
